FAERS Safety Report 9158299 (Version 1)
Quarter: 2013Q1

REPORT INFORMATION
  Report Type: Spontaneous
  Country: DE (occurrence: DE)
  Receive Date: 20130312
  Receipt Date: 20130312
  Transmission Date: 20140127
  Serious: Yes (Hospitalization)
  Sender: FDA-Public Use
  Company Number: DE-PFIZER INC-2013077600

PATIENT
  Age: 18 Year
  Sex: Female

DRUGS (1)
  1. ECALTA [Suspect]

REACTIONS (1)
  - Congestive cardiomyopathy [Recovered/Resolved]
